FAERS Safety Report 16038017 (Version 2)
Quarter: 2019Q2

REPORT INFORMATION
  Report Type: Spontaneous
  Country: US (occurrence: US)
  Receive Date: 20190305
  Receipt Date: 20190528
  Transmission Date: 20190711
  Serious: Yes (Life-Threatening, Hospitalization, Other)
  Sender: FDA-Public Use
  Company Number: US-JUBILANT CADISTA PHARMACEUTICALS-2019JUB00071

PATIENT
  Age: 58 Year
  Sex: Female

DRUGS (7)
  1. PREDNISONE. [Suspect]
     Active Substance: PREDNISONE
     Indication: GRAFT VERSUS HOST DISEASE
     Dosage: 20 MG, 2X/DAY
  2. IBRUTINIB [Suspect]
     Active Substance: IBRUTINIB
     Dosage: 420 MG
     Route: 048
     Dates: start: 20180619
  3. PREDNISONE. [Suspect]
     Active Substance: PREDNISONE
     Dosage: 10 MG, 2X/DAY
     Dates: start: 20180619
  4. IBRUTINIB [Suspect]
     Active Substance: IBRUTINIB
     Indication: CHRONIC GRAFT VERSUS HOST DISEASE
     Dosage: 280 MG, 1X/DAY
     Route: 048
     Dates: start: 20180508
  5. PREDNISONE. [Suspect]
     Active Substance: PREDNISONE
     Dosage: 15 MG, 2X/DAY
     Dates: start: 20180603
  6. PREDNISONE. [Suspect]
     Active Substance: PREDNISONE
     Dosage: 5 MG, 1X/DAY EVERY EVENING
     Dates: start: 20180621
  7. PREDNISONE. [Suspect]
     Active Substance: PREDNISONE
     Dosage: 10 MG, 1X/DAY EVERY MORNING
     Dates: start: 20180621

REACTIONS (10)
  - Oral dysaesthesia [Not Recovered/Not Resolved]
  - Acute kidney injury [Recovered/Resolved]
  - Hypothermia [Recovered/Resolved]
  - Osteonecrosis [Recovered/Resolved]
  - Atrial flutter [Recovering/Resolving]
  - Fatigue [Unknown]
  - Infection [Recovered/Resolved]
  - Cardiac dysfunction [Unknown]
  - Osteoarthritis [Unknown]
  - Arthritis [Unknown]

NARRATIVE: CASE EVENT DATE: 20180601
